FAERS Safety Report 17576406 (Version 3)
Quarter: 2021Q1

REPORT INFORMATION
  Report Type: Spontaneous
  Country: US (occurrence: US)
  Receive Date: 20200324
  Receipt Date: 20210212
  Transmission Date: 20210419
  Serious: Yes (Other)
  Sender: FDA-Public Use
  Company Number: US-SA-2020SA071679

PATIENT
  Age: 63 Year
  Sex: Female

DRUGS (2)
  1. LEVOTHYROXINE. [Concomitant]
     Active Substance: LEVOTHYROXINE
     Indication: AUTOIMMUNE THYROIDITIS
     Dosage: 200 UG, QD
     Route: 048
  2. ALIROCUMAB [Suspect]
     Active Substance: ALIROCUMAB
     Indication: HYPERCHOLESTEROLAEMIA
     Dosage: 75 MG, QOW (TOTAL 3 INJECTIONS)
     Route: 058

REACTIONS (7)
  - Ocular hyperaemia [Recovered/Resolved]
  - Choroidal effusion [Recovered/Resolved]
  - Sinusitis [Recovered/Resolved]
  - Eye pain [Recovered/Resolved]
  - Blindness [Recovered/Resolved]
  - Scleritis [Recovered/Resolved]
  - Rash maculo-papular [Recovered/Resolved]
